FAERS Safety Report 8482870-3 (Version None)
Quarter: 2012Q3

REPORT INFORMATION
  Report Type: 
  Country: None (occurrence: None)
  Receive Date: 20120702
  Receipt Date: 20120621
  Transmission Date: 20120928
  Serious: Yes (Other)
  Sender: FDA-Public Use
  Company Number: US-BAXTER-2012BH003724

PATIENT
  Sex: Female
  Weight: 56.4 kg

DRUGS (6)
  1. MOMETASONE FUROATE [Concomitant]
     Indication: ASTHMA
  2. ALPRAZOLAM [Concomitant]
     Indication: SLEEP DISORDER
     Route: 048
  3. ACETAMINOPHEN [Concomitant]
     Indication: PREMEDICATION
     Route: 048
     Dates: start: 20111013
  4. GAMMAGARD LIQUID [Suspect]
     Route: 042
     Dates: start: 20111021, end: 20120113
  5. DIPHENHYDRAMINE HCL [Concomitant]
     Indication: PREMEDICATION
     Route: 048
     Dates: start: 20111013
  6. GAMMAGARD LIQUID [Suspect]

REACTIONS (6)
  - INFUSION SITE DISCOMFORT [None]
  - INFUSION SITE ERYTHEMA [None]
  - VENOUS THROMBOSIS [None]
  - INFUSION SITE SWELLING [None]
  - INFUSION SITE IRRITATION [None]
  - PAIN IN EXTREMITY [None]
